FAERS Safety Report 16073736 (Version 2)
Quarter: 2019Q3

REPORT INFORMATION
  Report Type: Report from Study
  Country: AU (occurrence: AU)
  Receive Date: 20190314
  Receipt Date: 20190716
  Transmission Date: 20191004
  Serious: Yes (Hospitalization)
  Sender: FDA-Public Use
  Company Number: AU-SEATTLE GENETICS-2018SGN02755

PATIENT
  Age: 43 Year
  Sex: Male

DRUGS (7)
  1. DEXAMETHASONE. [Suspect]
     Active Substance: DEXAMETHASONE
     Indication: HODGKIN^S DISEASE
     Dosage: UNK
     Route: 065
  2. SENNA                              /00142201/ [Concomitant]
     Active Substance: SENNA LEAF
     Indication: CONSTIPATION
     Dosage: UNK UNK, BID
     Dates: start: 20181212
  3. METFORMIN [Concomitant]
     Active Substance: METFORMIN HYDROCHLORIDE
     Indication: HYPERGLYCAEMIA
     Dosage: 1 GRAM, BID
     Dates: start: 20181222
  4. BRENTUXIMAB VEDOTIN-MPI [Suspect]
     Active Substance: BRENTUXIMAB VEDOTIN
     Indication: HODGKIN^S DISEASE
     Dosage: 180 MG, UNK
     Route: 065
     Dates: start: 20181009
  5. COLOXYL                            /00061602/ [Concomitant]
     Active Substance: DOCUSATE SODIUM
     Indication: CONSTIPATION
     Dosage: UNK UNK, BID
     Dates: start: 20181212
  6. PROMETHAZINE [Concomitant]
     Active Substance: PROMETHAZINE HYDROCHLORIDE
     Indication: RASH
     Dosage: 25 MILLIGRAM
     Route: 065
     Dates: start: 20181217
  7. LENALIDOMIDE [Suspect]
     Active Substance: LENALIDOMIDE
     Indication: HODGKIN^S DISEASE
     Dosage: 15 MG, UNK
     Route: 065
     Dates: start: 20181009

REACTIONS (5)
  - Gastroenteritis [Recovered/Resolved]
  - Cytomegalovirus infection [Recovered/Resolved]
  - Cellulitis [Recovered/Resolved]
  - Pyrexia [Recovered/Resolved]
  - Pyrexia [Recovered/Resolved]

NARRATIVE: CASE EVENT DATE: 20181018
